FAERS Safety Report 7529210-1 (Version None)
Quarter: 2011Q2

REPORT INFORMATION
  Report Type: 
  Country: None (occurrence: None)
  Receive Date: 20110607
  Receipt Date: 20110601
  Transmission Date: 20111010
  Serious: Yes (Hospitalization)
  Sender: FDA-Public Use
  Company Number: DE-ROCHE-778560

PATIENT
  Sex: Male
  Weight: 62 kg

DRUGS (2)
  1. PEGINTERFERON ALFA-2A [Suspect]
     Route: 058
     Dates: start: 20100719
  2. RIBAVIRIN [Suspect]
     Route: 048
     Dates: start: 20100719

REACTIONS (3)
  - INFECTION [None]
  - PAINFUL RESPIRATION [None]
  - PNEUMONIA [None]
